FAERS Safety Report 5291989-X (Version None)
Quarter: 2007Q2

REPORT INFORMATION
  Report Type: 
  Country: None (occurrence: None)
  Receive Date: 20070410
  Receipt Date: 20070326
  Transmission Date: 20071010
  Serious: Yes (Life-Threatening, Hospitalization)
  Sender: FDA-Public Use
  Company Number: ES-GENENTECH-239482

PATIENT
  Age: 62 Year
  Sex: Female
  Weight: 74 kg

DRUGS (5)
  1. AVASTIN [Suspect]
     Indication: COLON CANCER
     Dosage: 550 MG, 1/WEEK
     Route: 042
     Dates: start: 20070207, end: 20070207
  2. BEMIPARIN SODIUM [Suspect]
     Indication: DRUG USE FOR UNKNOWN INDICATION
     Dosage: 3500 IU, UNK
     Route: 058
  3. FLUOROURACIL [Concomitant]
     Indication: COLON CANCER
  4. FOLINIC ACID [Concomitant]
     Indication: DRUG USE FOR UNKNOWN INDICATION
  5. IRINOTECAN HCL [Concomitant]
     Indication: COLON CANCER

REACTIONS (2)
  - DRUG INTERACTION [None]
  - HAEMOPTYSIS [None]
